FAERS Safety Report 5916291-1 (Version None)
Quarter: 2008Q4

REPORT INFORMATION
  Report Type: 
  Country: None (occurrence: None)
  Receive Date: 20081013
  Receipt Date: 20081006
  Transmission Date: 20090506
  Serious: Yes (Other)
  Sender: FDA-Public Use
  Company Number: PHHY2008DE23783

PATIENT
  Age: 35 Year
  Sex: Male

DRUGS (5)
  1. RASILEZ [Suspect]
  2. INSULIN [Concomitant]
  3. ENALAPRIL MALEATE [Concomitant]
  4. EINSALPHA [Concomitant]
  5. DEKRISTOL [Concomitant]

REACTIONS (3)
  - AGGRESSION [None]
  - DISORIENTATION [None]
  - HYPOGLYCAEMIA [None]
